FAERS Safety Report 23877380 (Version 1)
Quarter: 2024Q2

REPORT INFORMATION
  Report Type: Spontaneous
  Country: US (occurrence: US)
  Receive Date: 20240521
  Receipt Date: 20240521
  Transmission Date: 20240716
  Serious: No
  Sender: FDA-Public Use
  Company Number: US-GRAVITIPHARMA-GRA-2311-US-SPO-0038

PATIENT

DRUGS (1)
  1. GABAPENTIN [Suspect]
     Active Substance: GABAPENTIN
     Indication: Post herpetic neuralgia
     Dates: start: 2007

REACTIONS (5)
  - Pain [Unknown]
  - Drug ineffective [Unknown]
  - Product formulation issue [Unknown]
  - Product quality issue [Unknown]
  - Product substitution issue [Unknown]
